FAERS Safety Report 9423390 (Version 3)
Quarter: 2014Q1

REPORT INFORMATION
  Report Type: Spontaneous
  Country: US (occurrence: US)
  Receive Date: 20130726
  Receipt Date: 20140207
  Transmission Date: 20141002
  Serious: Yes (Hospitalization)
  Sender: FDA-Public Use
  Company Number: US-B.I. PHARMACEUTICALS,INC./RIDGEFIELD-2013-BI-21792BP

PATIENT
  Sex: Female
  Weight: 136.08 kg

DRUGS (14)
  1. PRADAXA [Suspect]
     Indication: ATRIAL FIBRILLATION
     Dosage: 300 MG
     Route: 048
     Dates: start: 201001, end: 201206
  2. MAG-OX [Concomitant]
     Dosage: 400 MG
     Route: 048
  3. POTASSIUM CHLORIDE [Concomitant]
     Dosage: 20 MEQ
     Route: 048
  4. SPIRONOLACTONE [Concomitant]
     Dosage: 25 MG
     Route: 048
  5. LASIX [Concomitant]
     Dosage: 80 MG
     Route: 048
  6. GLIPIZIDE ER [Concomitant]
     Dosage: 20 MG
     Route: 048
  7. GLIPIZIDE [Concomitant]
     Dosage: 10 MG
     Route: 048
  8. ENALAPRIL MALEATE [Concomitant]
     Dosage: 2.5 MG
     Route: 048
  9. LEVOTHYROXINE [Concomitant]
     Dosage: 125 MCG
     Route: 048
  10. DILTIAZEM HCL XR [Concomitant]
     Dosage: 240 MG
     Route: 048
  11. ASPIRIN [Concomitant]
     Dosage: 325 MG
     Route: 048
  12. ROPINIROLE HCL [Concomitant]
     Dosage: 0.5 MG
     Route: 048
  13. TRAMADOL [Concomitant]
     Indication: PAIN
     Route: 048
  14. NOVALOG-INSULIN [Concomitant]
     Dates: start: 2006

REACTIONS (3)
  - Vaginal haemorrhage [Unknown]
  - Endometrial hyperplasia [Unknown]
  - Epistaxis [Unknown]
